FAERS Safety Report 5498123-1 (Version None)
Quarter: 2007Q4

REPORT INFORMATION
  Report Type: 
  Country: None (occurrence: None)
  Receive Date: 20071025
  Receipt Date: 20071022
  Transmission Date: 20080405
  Serious: Yes (Hospitalization)
  Sender: FDA-Public Use
  Company Number: PH-BOEHRINGER INGELHEIM PHARMACEUTICALS, INC.-2007-BP-23242SG

PATIENT
  Age: 18 Month
  Sex: Female

DRUGS (1)
  1. COMBIVENT [Suspect]
     Indication: ASTHMA
     Dosage: GIVEN 4 TIMES
     Route: 055
     Dates: start: 20071022, end: 20071022

REACTIONS (2)
  - ERYTHEMA [None]
  - PYREXIA [None]
